FAERS Safety Report 10014440 (Version 1)
Quarter: 2014Q1

REPORT INFORMATION
  Report Type: Spontaneous
  Country: US (occurrence: US)
  Receive Date: 20140317
  Receipt Date: 20140317
  Transmission Date: 20141002
  Serious: Yes (Hospitalization)
  Sender: FDA-Public Use
  Company Number: US-AMGEN-USASP2014017031

PATIENT
  Age: 77 Year
  Sex: Female

DRUGS (3)
  1. XGEVA [Suspect]
     Indication: PRODUCT USED FOR UNKNOWN INDICATION
     Dosage: UNK
     Route: 065
     Dates: start: 20140107
  2. DEXAMETHASONE [Concomitant]
  3. DIPHENHYDRAMINE [Concomitant]

REACTIONS (1)
  - Infusion related reaction [Unknown]
